FAERS Safety Report 6427109-5 (Version None)
Quarter: 2009Q4

REPORT INFORMATION
  Report Type: 
  Country: None (occurrence: None)
  Receive Date: 20091026
  Receipt Date: 20090706
  Transmission Date: 20100525
  Serious: No
  Sender: FDA-Public Use
  Company Number: FPI-09-FIR-0194

PATIENT
  Age: 73 Year
  Sex: Male

DRUGS (8)
  1. FIRMAGON [Suspect]
     Indication: PROSTATE CANCER
     Dosage: 240MG (2 INJ X 120MG)
     Dates: start: 20090701
  2. ASPIRIN [Concomitant]
  3. MULTI-VITAMIN [Concomitant]
  4. VITAMIN E [Concomitant]
  5. TUMERIC [Concomitant]
  6. SAW PALMETTO [Concomitant]
  7. FISH OIL [Concomitant]
  8. KAPPARREST SUPPLEMENT [Concomitant]

REACTIONS (2)
  - INJECTION SITE ERYTHEMA [None]
  - INJECTION SITE SWELLING [None]
